FAERS Safety Report 11636637 (Version 2)
Quarter: 2015Q4

REPORT INFORMATION
  Report Type: Spontaneous
  Country: MX (occurrence: MX)
  Receive Date: 20151016
  Receipt Date: 20151204
  Transmission Date: 20160304
  Serious: Yes (Other)
  Sender: FDA-Public Use
  Company Number: MX-WATSON-2015-21443

PATIENT
  Age: 7 Year
  Sex: Male
  Weight: 30 kg

DRUGS (12)
  1. FENTANYL (UNKNOWN) [Suspect]
     Active Substance: FENTANYL
     Dosage: 15 MCG/HR, UNKNOWN
     Route: 065
  2. PHENYTOIN. [Concomitant]
     Active Substance: PHENYTOIN
     Indication: PRODUCT USED FOR UNKNOWN INDICATION
     Dosage: UNK
     Route: 065
  3. SEVOFLURANE. [Concomitant]
     Active Substance: SEVOFLURANE
     Indication: BRAIN OPERATION
     Dosage: UNK
     Route: 065
  4. THIOPENTAL [Concomitant]
     Active Substance: THIOPENTAL
     Indication: PRODUCT USED FOR UNKNOWN INDICATION
     Dosage: 2 MG/KG, Q1H
     Route: 065
  5. FENTANYL (UNKNOWN) [Suspect]
     Active Substance: FENTANYL
     Indication: BRAIN OPERATION
     Dosage: 30 MCG/HR, UNKNOWN
     Route: 065
  6. OMEPRAZOLE. [Concomitant]
     Active Substance: OMEPRAZOLE
     Indication: PRODUCT USED FOR UNKNOWN INDICATION
     Dosage: UNK
     Route: 065
  7. FENTANYL (UNKNOWN) [Suspect]
     Active Substance: FENTANYL
     Dosage: 100 ?G, SINGLE
     Route: 065
  8. MIDAZOLAM [Concomitant]
     Active Substance: MIDAZOLAM\MIDAZOLAM HYDROCHLORIDE
     Dosage: 3 MG, Q1H
     Route: 065
  9. ATRACURIUM [Concomitant]
     Active Substance: ATRACURIUM
     Indication: BRAIN OPERATION
     Dosage: 20 MG, SINGLE
     Route: 065
  10. MIDAZOLAM [Concomitant]
     Active Substance: MIDAZOLAM\MIDAZOLAM HYDROCHLORIDE
     Indication: PRODUCT USED FOR UNKNOWN INDICATION
     Dosage: 3 MG, SINGLE
     Route: 065
  11. PROPOFOL. [Concomitant]
     Active Substance: PROPOFOL
     Indication: BRAIN OPERATION
     Dosage: 100 MG, SINGLE
     Route: 065
  12. CEFTRIAXONE. [Concomitant]
     Active Substance: CEFTRIAXONE
     Indication: PRODUCT USED FOR UNKNOWN INDICATION
     Dosage: UNK
     Route: 065

REACTIONS (1)
  - Serotonin syndrome [Recovered/Resolved]
